FAERS Safety Report 14967494 (Version 2)
Quarter: 2018Q3

REPORT INFORMATION
  Report Type: Report from Study
  Country: None (occurrence: CA)
  Receive Date: 20180604
  Receipt Date: 20180905
  Transmission Date: 20181010
  Serious: Yes (Hospitalization, Other)
  Sender: FDA-Public Use
  Company Number: CA-ABBVIE-18K-028-2373961-00

PATIENT
  Age: 34 Year
  Sex: Female

DRUGS (2)
  1. HUMIRA [Suspect]
     Active Substance: ADALIMUMAB
     Indication: CROHN^S DISEASE
     Route: 058
     Dates: start: 20170801
  2. ZOFRAN [Suspect]
     Active Substance: ONDANSETRON HYDROCHLORIDE
     Indication: PRODUCT USED FOR UNKNOWN INDICATION
     Route: 065

REACTIONS (18)
  - Large intestinal obstruction [Not Recovered/Not Resolved]
  - Nausea [Unknown]
  - Incision site erythema [Not Recovered/Not Resolved]
  - Impaired work ability [Recovering/Resolving]
  - Anaemia [Unknown]
  - Crohn^s disease [Not Recovered/Not Resolved]
  - Drug ineffective [Unknown]
  - Asthenia [Not Recovered/Not Resolved]
  - Post procedural complication [Unknown]
  - Food intolerance [Not Recovered/Not Resolved]
  - Gastrointestinal motility disorder [Not Recovered/Not Resolved]
  - Crohn^s disease [Recovered/Resolved]
  - Constipation [Not Recovered/Not Resolved]
  - Stress [Not Recovered/Not Resolved]
  - Fall [Recovered/Resolved]
  - Procedural haemorrhage [Recovered/Resolved]
  - Frequent bowel movements [Not Recovered/Not Resolved]
  - Abdominal distension [Unknown]

NARRATIVE: CASE EVENT DATE: 2017
